FAERS Safety Report 8481894-X (Version None)
Quarter: 2012Q2

REPORT INFORMATION
  Report Type: 
  Country: None (occurrence: None)
  Receive Date: 20120626
  Receipt Date: 20120626
  Transmission Date: 20120825
  Serious: Yes (Hospitalization)
  Sender: FDA-Public Use
  Company Number: None

PATIENT
  Age: 81 Year
  Sex: Male
  Weight: 79.3795 kg

DRUGS (1)
  1. LEVOFLOXACIN [Suspect]
     Indication: RESPIRATORY TRACT CONGESTION
     Dosage: ONE DAY
     Dates: start: 20120323, end: 20120402

REACTIONS (2)
  - TENDON RUPTURE [None]
  - GAIT DISTURBANCE [None]
